FAERS Safety Report 21950015 (Version 2)
Quarter: 2023Q1

REPORT INFORMATION
  Report Type: Spontaneous
  Country: GB (occurrence: GB)
  Receive Date: 20230203
  Receipt Date: 20230208
  Transmission Date: 20230417
  Serious: Yes (Hospitalization, Other)
  Sender: FDA-Public Use
  Company Number: GB-009507513-2302GBR000473

PATIENT
  Age: 62 Year
  Sex: Female

DRUGS (1)
  1. KEYTRUDA [Suspect]
     Active Substance: PEMBROLIZUMAB
     Indication: Triple negative breast cancer
     Dosage: UNK

REACTIONS (5)
  - Immune-mediated enterocolitis [Recovered/Resolved]
  - Immune-mediated hepatitis [Recovering/Resolving]
  - Liver function test increased [Recovering/Resolving]
  - Diarrhoea [Recovered/Resolved]
  - Hepatitis chronic persistent [Recovering/Resolving]

NARRATIVE: CASE EVENT DATE: 20170101
